FAERS Safety Report 5877448-1 (Version None)
Quarter: 2008Q3

REPORT INFORMATION
  Report Type: 
  Country: None (occurrence: None)
  Receive Date: 20080909
  Receipt Date: 20080825
  Transmission Date: 20090109
  Serious: Yes (Other)
  Sender: FDA-Public Use
  Company Number: SPV1-2008-01837

PATIENT
  Sex: Female

DRUGS (1)
  1. FOSRENOL [Suspect]

REACTIONS (2)
  - BLOOD PHOSPHORUS INCREASED [None]
  - INTESTINAL OBSTRUCTION [None]
